FAERS Safety Report 8985733 (Version 1)
Quarter: 2012Q4

REPORT INFORMATION
  Report Type: Report from Study
  Country: NL (occurrence: NL)
  Receive Date: 20121226
  Receipt Date: 20121226
  Transmission Date: 20130627
  Serious: Yes (Hospitalization)
  Sender: FDA-Public Use
  Company Number: NL-ASTELLAS-2012EU011009

PATIENT
  Age: 21 Year
  Sex: Female
  Weight: 49 kg

DRUGS (13)
  1. TACROLIMUS SYSTEMIC [Suspect]
     Dosage: 12 mg, Unknown/D
     Route: 065
     Dates: start: 20090717
  2. TACROLIMUS SYSTEMIC [Suspect]
     Dosage: 10 mg, Unknown/D
     Route: 065
  3. TACROLIMUS SYSTEMIC [Suspect]
     Dosage: 8 mg, Unknown/D
     Route: 065
  4. PREDNISONE [Concomitant]
     Dosage: 7.5 mg, Unknown/D
     Route: 065
     Dates: start: 20090716
  5. PREDNISONE [Concomitant]
     Dosage: 15 mg, Unknown/D
     Route: 065
     Dates: start: 20090716
  6. SULFAMETHOXAZOLE AND TRIMETHOPRIM [Concomitant]
     Dosage: 480 mg, Unknown/D
     Route: 065
     Dates: start: 20090717, end: 20100119
  7. SULFAMETHOXAZOLE AND TRIMETHOPRIM [Concomitant]
     Dosage: 480 mg, Unknown/D
     Route: 065
     Dates: start: 20100218
  8. METOPROLOL [Concomitant]
     Dosage: 100 mg, Unknown/D
     Route: 065
     Dates: start: 20090716
  9. CALCIUM CARBONATE [Concomitant]
     Dosage: 500 mg, Unknown/D
     Route: 065
     Dates: start: 20090720, end: 20100119
  10. CALCIUM CARBONATE [Concomitant]
     Dosage: 500 mg, Unknown/D
     Route: 065
     Dates: start: 20100121
  11. ONE-ALPHA [Concomitant]
     Dosage: 0.25 ug, Unknown/D
     Route: 065
     Dates: start: 20090720
  12. ENALAPRIL [Concomitant]
     Dosage: 10 mg, Unknown/D
     Route: 065
     Dates: start: 20090719, end: 20100119
  13. AMLODIPINE [Concomitant]
     Dosage: 10 mg, Unknown/D
     Dates: start: 20090717

REACTIONS (5)
  - Urinary tract infection [Recovered/Resolved]
  - Ureteric rupture [Recovering/Resolving]
  - Transplant failure [Recovering/Resolving]
  - Complications of transplant surgery [Recovered/Resolved]
  - Renal impairment [Recovered/Resolved]
